FAERS Safety Report 21303050 (Version 1)
Quarter: 2022Q3

REPORT INFORMATION
  Report Type: Spontaneous
  Country: IN (occurrence: None)
  Receive Date: 20220907
  Receipt Date: 20220907
  Transmission Date: 20221026
  Serious: Yes (Other)
  Sender: FDA-Public Use
  Company Number: None

PATIENT
  Age: 60 Year
  Sex: Female
  Weight: 40 kg

DRUGS (1)
  1. METFORMIN\VOGLIBOSE [Suspect]
     Active Substance: METFORMIN\VOGLIBOSE
     Indication: Diabetes mellitus
     Dosage: OTHER QUANTITY : 1 TABLET(S);?FREQUENCY : TWICE A DAY;?
     Route: 048
     Dates: start: 20220902, end: 20220904

REACTIONS (4)
  - Chest pain [None]
  - Foreign body in throat [None]
  - Product solubility abnormal [None]
  - Product quality issue [None]

NARRATIVE: CASE EVENT DATE: 20220903
